FAERS Safety Report 25245704 (Version 10)
Quarter: 2025Q3

REPORT INFORMATION
  Report Type: Report from Study
  Country: US (occurrence: US)
  Receive Date: 20250428
  Receipt Date: 20250801
  Transmission Date: 20251020
  Serious: Yes (Disabling, Other)
  Sender: NOVARTIS
  Company Number: US-002147023-NVSC2025US026184

PATIENT
  Age: 55 Year
  Sex: Male

DRUGS (7)
  1. KESIMPTA [Suspect]
     Active Substance: OFATUMUMAB
     Indication: Multiple sclerosis
     Dosage: 20MG./0.4ML, QMO
     Route: 065
  2. KESIMPTA [Suspect]
     Active Substance: OFATUMUMAB
     Indication: Relapsing multiple sclerosis
     Dosage: 20 MG, QW
     Route: 058
  3. KESIMPTA [Suspect]
     Active Substance: OFATUMUMAB
     Dosage: 20 MG, QMO
     Route: 058
     Dates: start: 20250425, end: 20250513
  4. KESIMPTA [Suspect]
     Active Substance: OFATUMUMAB
     Dosage: 20MG/.4ML, QW
     Route: 030
  5. KESIMPTA [Suspect]
     Active Substance: OFATUMUMAB
     Route: 065
  6. KESIMPTA [Suspect]
     Active Substance: OFATUMUMAB
     Dosage: 20 MG, QMO (STOP DATE: 8 JUL 2025)
     Route: 058
  7. CYTOMEL [Concomitant]
     Active Substance: LIOTHYRONINE SODIUM
     Indication: Product used for unknown indication
     Route: 065

REACTIONS (15)
  - Myasthenia gravis [Unknown]
  - Ankylosing spondylitis [Unknown]
  - Hyperthyroidism [Not Recovered/Not Resolved]
  - Head injury [Not Recovered/Not Resolved]
  - Back injury [Not Recovered/Not Resolved]
  - Fall [Not Recovered/Not Resolved]
  - Skin abrasion [Not Recovered/Not Resolved]
  - Joint injury [Not Recovered/Not Resolved]
  - Scab [Not Recovered/Not Resolved]
  - Back pain [Not Recovered/Not Resolved]
  - Tremor [Unknown]
  - Gait disturbance [Unknown]
  - Asthenia [Not Recovered/Not Resolved]
  - Sensory disturbance [Not Recovered/Not Resolved]
  - Incorrect route of product administration [Unknown]

NARRATIVE: CASE EVENT DATE: 20250425
